FAERS Safety Report 8019335-9 (Version None)
Quarter: 2012Q1

REPORT INFORMATION
  Report Type: 
  Country: None (occurrence: None)
  Receive Date: 20120103
  Receipt Date: 20111223
  Transmission Date: 20120608
  Serious: Yes (Hospitalization, Other)
  Sender: FDA-Public Use
  Company Number: US-ACTELION-A-US2011-55016

PATIENT

DRUGS (6)
  1. MULTAQ [Concomitant]
  2. DIGOXIN [Concomitant]
  3. REVATIO [Concomitant]
  4. TRACLEER [Suspect]
     Indication: PULMONARY ARTERIAL HYPERTENSION
     Dosage: UNK
     Route: 048
     Dates: start: 20040917
  5. OXYGEN [Concomitant]
  6. CALCIUM CHANNEL BLOCKERS [Concomitant]

REACTIONS (5)
  - PULMONARY HYPERTENSION [None]
  - ATRIAL FIBRILLATION [None]
  - CARDIOVERSION [None]
  - DYSPNOEA [None]
  - PULMONARY THROMBOSIS [None]
